FAERS Safety Report 9830002 (Version 2)
Quarter: 2014Q1

REPORT INFORMATION
  Report Type: Spontaneous
  Country: GB (occurrence: GB)
  Receive Date: 20140120
  Receipt Date: 20140205
  Transmission Date: 20141002
  Serious: Yes (Hospitalization, Other)
  Sender: FDA-Public Use
  Company Number: PHFR2014GB000728

PATIENT
  Age: 41 Year
  Sex: Male

DRUGS (5)
  1. CLOZARIL [Suspect]
     Dosage: 450 MG, DAILY
     Route: 048
     Dates: start: 20021216
  2. CLOZARIL [Suspect]
     Dosage: UNK, 4 DAYS OF DOSE
     Route: 048
  3. CLOZARIL [Suspect]
     Dosage: UNK
     Route: 048
  4. AMPHETAMINE [Suspect]
     Dosage: UNK
  5. METHADONE [Concomitant]
     Indication: DRUG DEPENDENCE
     Dosage: 50 MG, DAILY
     Route: 048

REACTIONS (5)
  - Alcohol abuse [Recovered/Resolved]
  - Overdose [Recovered/Resolved]
  - Psychotic disorder [Unknown]
  - C-reactive protein increased [Unknown]
  - Troponin T increased [Unknown]
